FAERS Safety Report 15364936 (Version 1)
Quarter: 2018Q3

REPORT INFORMATION
  Report Type: Spontaneous
  Country: IT (occurrence: IT)
  Receive Date: 20180910
  Receipt Date: 20180910
  Transmission Date: 20181010
  Serious: Yes (Other)
  Sender: FDA-Public Use
  Company Number: IT-AUROBINDO-AUR-APL-2018-044774

PATIENT
  Age: 77 Year
  Sex: Female
  Weight: 66 kg

DRUGS (4)
  1. TORVAST [Suspect]
     Active Substance: ATORVASTATIN
     Indication: DISEASE RISK FACTOR
     Dosage: 10 MILLIGRAM, DAILY
     Route: 065
     Dates: start: 20180101
  2. ASPIRINETTA [Suspect]
     Active Substance: ASPIRIN
     Indication: DISEASE RISK FACTOR
     Dosage: 100 MILLIGRAM, DAILY
     Route: 065
     Dates: start: 20180101
  3. PIOGLITAZONE. [Suspect]
     Active Substance: PIOGLITAZONE
     Indication: TYPE 2 DIABETES MELLITUS
     Dosage: 30 MILLIGRAM, DAILY
     Route: 065
     Dates: start: 20180416, end: 20180503
  4. TAVOR (LORAZEPAM) [Concomitant]
     Active Substance: LORAZEPAM
     Indication: GENERALISED ANXIETY DISORDER
     Dosage: 1 MILLIGRAM, DAILY
     Route: 065
     Dates: start: 20180101

REACTIONS (2)
  - Pain [Recovered/Resolved]
  - Dyspnoea exertional [Recovered/Resolved]

NARRATIVE: CASE EVENT DATE: 20180430
